FAERS Safety Report 22100339 (Version 1)
Quarter: 2023Q1

REPORT INFORMATION
  Report Type: Spontaneous
  Country: US (occurrence: None)
  Receive Date: 20230315
  Receipt Date: 20230315
  Transmission Date: 20230418
  Serious: Yes (Hospitalization)
  Sender: FDA-Public Use
  Company Number: US-MDD US Operations-MDD202210-003209

PATIENT
  Age: 71 Year
  Sex: Male
  Weight: 88.58 kg

DRUGS (2)
  1. APOKYN [Suspect]
     Active Substance: APOMORPHINE HYDROCHLORIDE
     Indication: Parkinson^s disease
     Dosage: NOT PROVIDED
     Route: 058
  2. APOKYN [Suspect]
     Active Substance: APOMORPHINE HYDROCHLORIDE
     Dosage: 10MG /3ML CARTRIDGE 1 EA CART
     Route: 058
     Dates: end: 202302

REACTIONS (6)
  - Dermatitis [Unknown]
  - Hospitalisation [Unknown]
  - Pain [Not Recovered/Not Resolved]
  - Dystonia [Not Recovered/Not Resolved]
  - Quality of life decreased [Unknown]
  - Product use issue [Unknown]

NARRATIVE: CASE EVENT DATE: 20221004
